FAERS Safety Report 5954698-7 (Version None)
Quarter: 2008Q4

REPORT INFORMATION
  Report Type: 
  Country: None (occurrence: None)
  Receive Date: 20081117
  Receipt Date: 20081106
  Transmission Date: 20090506
  Serious: Yes (Hospitalization)
  Sender: FDA-Public Use
  Company Number: FR-AMGEN-UK317799

PATIENT
  Sex: Female

DRUGS (2)
  1. NEULASTA [Suspect]
     Indication: NEUTROPENIA
     Route: 065
  2. UNSPECIFIED ANTINEOPLASTIC AGENT [Concomitant]
     Route: 065

REACTIONS (1)
  - DRUG INEFFECTIVE [None]
